FAERS Safety Report 17006207 (Version 1)
Quarter: 2019Q4

REPORT INFORMATION
  Report Type: Spontaneous
  Country: US (occurrence: US)
  Receive Date: 20190926
  Receipt Date: 20190926
  Transmission Date: 20200122
  Serious: Yes (Hospitalization)
  Sender: FDA-Public Use
  Company Number: None

PATIENT
  Age: 64 Year
  Sex: Female
  Weight: 65 kg

DRUGS (13)
  1. ROSUVASTATIN. [Concomitant]
     Active Substance: ROSUVASTATIN
  2. ALPRAZOLAM. [Concomitant]
     Active Substance: ALPRAZOLAM
  3. ASPIRIN. [Concomitant]
     Active Substance: ASPIRIN
  4. FLUTICASONE. [Concomitant]
     Active Substance: FLUTICASONE
  5. SERTRALINE [Concomitant]
     Active Substance: SERTRALINE HYDROCHLORIDE
  6. GABAPENTIN. [Concomitant]
     Active Substance: GABAPENTIN
  7. APIXABAN [Suspect]
     Active Substance: APIXABAN
     Indication: DEEP VEIN THROMBOSIS
     Dosage: ?          OTHER DOSE:2.5 OR 5.0 MG;?
     Route: 048
  8. LUBIPROSTONE [Concomitant]
     Active Substance: LUBIPROSTONE
  9. BEVACIZUMAB. [Concomitant]
     Active Substance: BEVACIZUMAB
  10. LANSOPRAZOLE. [Concomitant]
     Active Substance: LANSOPRAZOLE
  11. LEVETIRACETAM. [Concomitant]
     Active Substance: LEVETIRACETAM
  12. LISINOPRIL. [Concomitant]
     Active Substance: LISINOPRIL
  13. ONDANSETRON [Concomitant]
     Active Substance: ONDANSETRON

REACTIONS (7)
  - Post procedural haematoma [None]
  - Post procedural complication [None]
  - Cholecystectomy [None]
  - Reactive gastropathy [None]
  - Seroma [None]
  - Body temperature increased [None]
  - Nausea [None]

NARRATIVE: CASE EVENT DATE: 20190925
